FAERS Safety Report 7232745-2 (Version None)
Quarter: 2011Q1

REPORT INFORMATION
  Report Type: 
  Country: None (occurrence: None)
  Receive Date: 20110110
  Receipt Date: 20101227
  Transmission Date: 20110831
  Serious: Yes (Hospitalization)
  Sender: FDA-Public Use
  Company Number: 2010AP002595

PATIENT
  Age: 71 Year
  Sex: Male

DRUGS (3)
  1. ATORVASTATIN (ATORVASTATIN) [Suspect]
     Dosage: 20 MG;QD
  2. PERINDOPRIL ERBUMINE [Suspect]
     Indication: HYPERTENSION
     Dosage: 4 MG;QD
  3. PHENPROCOUMON (PHENPROCOUMON) [Suspect]
     Dosage: PO
     Route: 048

REACTIONS (13)
  - LIVER INJURY [None]
  - HAEMATURIA [None]
  - HEPATIC CIRRHOSIS [None]
  - TOXICITY TO VARIOUS AGENTS [None]
  - HEPATIC FAILURE [None]
  - HAEMOCHROMATOSIS [None]
  - EPISTAXIS [None]
  - SERUM FERRITIN INCREASED [None]
  - INTERNATIONAL NORMALISED RATIO INCREASED [None]
  - HEPATITIS [None]
  - EOSINOPHILIA [None]
  - HEPATOCELLULAR INJURY [None]
  - HEPATIC NECROSIS [None]
